FAERS Safety Report 5212731-4 (Version None)
Quarter: 2006Q4

REPORT INFORMATION
  Report Type: 
  Country: None (occurrence: None)
  Receive Date: 20061115
  Receipt Date: 20060808
  Transmission Date: 20070319
  Serious: No
  Sender: FDA-Public Use
  Company Number: 200615134BWH

PATIENT
  Sex: Male

DRUGS (1)
  1. NEXAVAR [Suspect]
     Dosage: 400 MG, TOTAL DAILY; ORAL
     Route: 048

REACTIONS (2)
  - EPISTAXIS [None]
  - EYE HAEMORRHAGE [None]
